FAERS Safety Report 6092210-5 (Version None)
Quarter: 2009Q1

REPORT INFORMATION
  Report Type: 
  Country: None (occurrence: None)
  Receive Date: 20090223
  Receipt Date: 20090223
  Transmission Date: 20090719
  Serious: Yes (Hospitalization)
  Sender: FDA-Public Use
  Company Number: None

PATIENT
  Sex: Female
  Weight: 94 kg

DRUGS (2)
  1. CARBOPLATIN [Suspect]
     Dosage: 350 MG
     Dates: end: 20090122
  2. TAXOL [Suspect]
     Dosage: 350 MG
     Dates: end: 20090122

REACTIONS (12)
  - BLOOD CULTURE POSITIVE [None]
  - DEHYDRATION [None]
  - ELECTROLYTE DEPLETION [None]
  - EYE INFECTION BACTERIAL [None]
  - EYE INFECTION FUNGAL [None]
  - NAUSEA [None]
  - NEUTROPENIA [None]
  - PYREXIA [None]
  - RENAL FAILURE ACUTE [None]
  - STAPHYLOCOCCAL INFECTION [None]
  - VISUAL IMPAIRMENT [None]
  - VOMITING [None]
